FAERS Safety Report 9780141 (Version 2)
Quarter: 2014Q1

REPORT INFORMATION
  Report Type: Spontaneous
  Country: US (occurrence: US)
  Receive Date: 20131223
  Receipt Date: 20140116
  Transmission Date: 20141002
  Serious: No
  Sender: FDA-Public Use
  Company Number: US-009507513-1312USA009139

PATIENT
  Age: 70 Year
  Sex: Female
  Weight: 72.56 kg

DRUGS (1)
  1. OXYTROL FOR WOMEN [Suspect]
     Indication: POLLAKIURIA
     Dosage: UNK, UNKNOWN
     Route: 062
     Dates: start: 201310, end: 201312

REACTIONS (2)
  - Pain [Not Recovered/Not Resolved]
  - Product adhesion issue [Unknown]
